FAERS Safety Report 5523048-2 (Version None)
Quarter: 2007Q4

REPORT INFORMATION
  Report Type: 
  Country: None (occurrence: None)
  Receive Date: 20071121
  Receipt Date: 20071112
  Transmission Date: 20080405
  Serious: Yes (Death)
  Sender: FDA-Public Use
  Company Number: FR-NOVOPROD-267992

PATIENT

DRUGS (3)
  1. NOVOSEVEN [Suspect]
     Indication: MULTIPLE INJURIES
     Dosage: 2.4 MG, UNK
     Route: 042
     Dates: start: 20070207
  2. NOVOSEVEN [Suspect]
     Dosage: 4.8 MG, X 2
     Route: 042
     Dates: start: 20070207
  3. NOVOSEVEN [Suspect]
     Dosage: 2.4 MG, UNK
     Route: 042
     Dates: start: 20070207

REACTIONS (1)
  - CEREBROVASCULAR ACCIDENT [None]
